FAERS Safety Report 4349161-3 (Version None)
Quarter: 2004Q2

REPORT INFORMATION
  Report Type: 
  Country: None (occurrence: None)
  Receive Date: 20040427
  Receipt Date: 20030714
  Transmission Date: 20050107
  Serious: Yes (Hospitalization)
  Sender: FDA-Public Use
  Company Number: 000269

PATIENT
  Sex: Female

DRUGS (4)
  1. ZEVALIN [Suspect]
     Indication: NON-HODGKIN'S LYMPHOMA
     Dosage: 250 MG/M2, RITUXAN DOSE 1, INTRAVENOUS; 250 MG/M2, RITUXAN DOSE 2, INTRAVENOUS
     Route: 042
     Dates: start: 20020307, end: 20020307
  2. ZEVALIN [Suspect]
     Indication: NON-HODGKIN'S LYMPHOMA
     Dosage: 250 MG/M2, RITUXAN DOSE 1, INTRAVENOUS; 250 MG/M2, RITUXAN DOSE 2, INTRAVENOUS
     Route: 042
     Dates: start: 20020314, end: 20020314
  3. ZEVALIN [Suspect]
     Indication: NON-HODGKIN'S LYMPHOMA
     Dosage: 0.4 MCI/KG,Y-[90] ZEVALIN, INTRAVENOUS; SINGLE, IN-[111] ZEVALIN, INTRAVENOUS
     Route: 042
     Dates: start: 20020307, end: 20020307
  4. ZEVALIN [Suspect]
     Indication: NON-HODGKIN'S LYMPHOMA
     Dosage: 0.4 MCI/KG,Y-[90] ZEVALIN, INTRAVENOUS; SINGLE, IN-[111] ZEVALIN, INTRAVENOUS
     Route: 042
     Dates: start: 20020314, end: 20020314

REACTIONS (4)
  - ANAEMIA [None]
  - NEUTROPENIA [None]
  - PYREXIA [None]
  - THROMBOCYTOPENIA [None]
